FAERS Safety Report 5984172-3 (Version None)
Quarter: 2008Q4

REPORT INFORMATION
  Report Type: 
  Country: None (occurrence: None)
  Receive Date: 20081208
  Receipt Date: 20081202
  Transmission Date: 20090506
  Serious: Yes (Death, Life-Threatening, Hospitalization)
  Sender: FDA-Public Use
  Company Number: US-SANOFI-SYNTHELABO-F01200801821

PATIENT
  Sex: Female
  Weight: 36.9 kg

DRUGS (3)
  1. CETUXIMAB [Suspect]
     Route: 041
     Dates: start: 20081105, end: 20081105
  2. GEMCITABINE HCL [Suspect]
     Dosage: D1, Q2W
     Route: 041
     Dates: start: 20081029, end: 20081029
  3. OXALIPLATIN [Suspect]
     Indication: PANCREATIC CARCINOMA
     Dosage: D2,Q2W
     Route: 041
     Dates: start: 20081030, end: 20081030

REACTIONS (5)
  - DEATH [None]
  - FRACTURE [None]
  - METABOLIC ACIDOSIS [None]
  - PLEURAL EFFUSION [None]
  - PULMONARY OEDEMA [None]
